FAERS Safety Report 6106687-X (Version None)
Quarter: 2009Q1

REPORT INFORMATION
  Report Type: 
  Country: None (occurrence: None)
  Receive Date: 20090305
  Receipt Date: 20090223
  Transmission Date: 20090719
  Serious: Yes (Death, Hospitalization)
  Sender: FDA-Public Use
  Company Number: 2008S1000455

PATIENT
  Age: 77 Year
  Sex: Female

DRUGS (17)
  1. CUBICIN [Suspect]
     Indication: SEROMA
     Dosage: 330 MG; Q24H
     Dates: start: 20081106, end: 20081117
  2. PHENERGAN HCL [Concomitant]
  3. BENAZEPRIL HYDROCHLORIDE [Concomitant]
  4. ZETIA [Concomitant]
  5. CRESTOR [Concomitant]
  6. FENTANYL-25 [Concomitant]
  7. TRICHLOROACETIC ACID [Concomitant]
  8. ASPIRIN [Concomitant]
  9. SYMBICORT [Concomitant]
  10. SENOKOT [Concomitant]
  11. METAMUCIL /01430601/ [Concomitant]
  12. COD-LIVER OIL [Concomitant]
  13. NEOSPORIN OPHTHALMIC /00130201/ [Concomitant]
  14. PROTONIX /01263201/ [Concomitant]
  15. NORCO [Concomitant]
  16. RESTORIL /00393701/ [Concomitant]
  17. CIPROFLOXACIN [Concomitant]

REACTIONS (5)
  - DEHYDRATION [None]
  - NAUSEA [None]
  - RESPIRATORY FAILURE [None]
  - RESPIRATORY SYNCYTIAL VIRUS INFECTION [None]
  - VOMITING [None]
